FAERS Safety Report 8050300 (Version 2)
Quarter: 2012Q4

REPORT INFORMATION
  Report Type: 
  Country: US (occurrence: US)
  Receive Date: 20110722
  Receipt Date: 20120910
  Transmission Date: 20130627
  Serious: Yes (Death, Other)
  Sender: FDA-Public Use
  Company Number: US-ASTRAZENECA-2011SE42176

PATIENT
  Age: 933 Month
  Sex: Male

DRUGS (14)
  1. SYMBICORT [Suspect]
     Dosage: FREQUENCY UNKNOWN
     Route: 055
  2. ATENOLOL [Concomitant]
     Dates: start: 20110419
  3. NEOMYCIN [Concomitant]
     Dates: start: 20110108
  4. CEFUROXIME [Concomitant]
     Dates: start: 20110110
  5. DEHISTINE [Concomitant]
     Dates: start: 20110110
  6. METHYLPRED [Concomitant]
     Dates: start: 20110207
  7. LEVAQUIN [Concomitant]
     Dates: start: 20110207
  8. AMOX/K CLAV [Concomitant]
     Dates: start: 20110227
  9. NYSTATIN [Concomitant]
     Dates: start: 20110227
  10. FLUCONAZOLE [Concomitant]
     Dates: start: 20110227
  11. CYANOCOBALAMIN [Concomitant]
     Dates: start: 20110418
  12. CITALOPRAM [Concomitant]
     Dates: start: 20110419
  13. CHLORHEX [Concomitant]
     Dates: start: 20110419
  14. AMOXICILLIN [Concomitant]
     Dates: start: 20110419

REACTIONS (4)
  - Neoplasm malignant [Fatal]
  - Impaired work ability [Unknown]
  - Gastric cancer [Fatal]
  - Metastases to liver [Unknown]
